FAERS Safety Report 5001886-2 (Version None)
Quarter: 2006Q2

REPORT INFORMATION
  Report Type: 
  Country: None (occurrence: None)
  Receive Date: 20060515
  Receipt Date: 20050607
  Transmission Date: 20061013
  Serious: Yes (Hospitalization, Other)
  Sender: FDA-Public Use
  Company Number: US-MERCK-0506USA01437

PATIENT
  Age: 63 Year
  Sex: Female
  Weight: 114 kg

DRUGS (8)
  1. VIOXX [Suspect]
     Indication: OSTEOARTHRITIS
     Route: 048
     Dates: start: 20010531, end: 20041001
  2. AMITRIPTYLINE HYDROCHLORIDE [Concomitant]
     Indication: NEURALGIA
     Route: 065
     Dates: start: 19990511
  3. ATENOLOL [Concomitant]
     Indication: HYPERTENSION
     Route: 065
     Dates: start: 19981223
  4. GLIPIZIDE [Concomitant]
     Indication: DIABETES MELLITUS
     Route: 065
     Dates: start: 19990405
  5. LISINOPRIL [Concomitant]
     Indication: HYPERTENSION
     Route: 065
     Dates: start: 19990503
  6. METFORMIN [Concomitant]
     Indication: DIABETES MELLITUS
     Route: 065
     Dates: start: 19981207
  7. PREMPRO [Concomitant]
     Route: 065
     Dates: start: 19990315
  8. HYDROCHLOROTHIAZIDE [Concomitant]
     Indication: HYPERTENSION
     Route: 065
     Dates: start: 20010605

REACTIONS (12)
  - ARTHROPATHY [None]
  - BLOOD CHOLESTEROL INCREASED [None]
  - CARDIAC FAILURE CONGESTIVE [None]
  - DEEP VEIN THROMBOSIS [None]
  - DIFFICULTY IN WALKING [None]
  - DYSPNOEA [None]
  - HAEMORRHOIDS [None]
  - MASS [None]
  - NEPHROLITHIASIS [None]
  - PULMONARY EMBOLISM [None]
  - RHEUMATOID ARTHRITIS [None]
  - SKIN CANCER [None]
